FAERS Safety Report 18306800 (Version 1)
Quarter: 2020Q3

REPORT INFORMATION
  Report Type: Spontaneous
  Country: US (occurrence: US)
  Receive Date: 20200923
  Receipt Date: 20200923
  Transmission Date: 20201103
  Serious: Yes (Other)
  Sender: FDA-Public Use
  Company Number: None

PATIENT
  Age: 31 Year
  Sex: Female
  Weight: 75.3 kg

DRUGS (2)
  1. NATURE?THROID [Suspect]
     Active Substance: THYROID, PORCINE
     Route: 048
     Dates: start: 20170724, end: 20180211
  2. TROKENDI XR [Concomitant]
     Active Substance: TOPIRAMATE

REACTIONS (2)
  - Dry eye [None]
  - Alopecia [None]

NARRATIVE: CASE EVENT DATE: 20180211
